FAERS Safety Report 6699031-0 (Version None)
Quarter: 2010Q2

REPORT INFORMATION
  Report Type: 
  Country: None (occurrence: None)
  Receive Date: 20100427
  Receipt Date: 20100421
  Transmission Date: 20101027
  Serious: Yes (Hospitalization)
  Sender: FDA-Public Use
  Company Number: US-BRISTOL-MYERS SQUIBB COMPANY-15074461

PATIENT
  Age: 63 Year
  Sex: Male
  Weight: 80 kg

DRUGS (7)
  1. CISPLATIN [Suspect]
  2. RADIATION THERAPY [Suspect]
  3. LEVOTHYROXINE [Concomitant]
  4. MEGESTROL ACETATE [Concomitant]
  5. METOPROLOL [Concomitant]
  6. SIMVASTATIN [Concomitant]
  7. MOTRIN [Concomitant]
     Dates: end: 20091211

REACTIONS (1)
  - GASTROINTESTINAL HAEMORRHAGE [None]
